FAERS Safety Report 9346575 (Version 4)
Quarter: 2014Q1

REPORT INFORMATION
  Report Type: Report from Study
  Country: FR (occurrence: FR)
  Receive Date: 20130613
  Receipt Date: 20140123
  Transmission Date: 20141002
  Serious: Yes (Death, Other)
  Sender: FDA-Public Use
  Company Number: FR-CELGENEUS-056-C5013-13060165

PATIENT
  Age: 80 Year
  Sex: Male
  Weight: 75 kg

DRUGS (7)
  1. CC-5013 [Suspect]
     Indication: PLASMA CELL MYELOMA
     Dosage: 25 MILLIGRAM
     Route: 048
     Dates: start: 20120410, end: 20120925
  2. DEXAMETHASONE [Suspect]
     Indication: PLASMA CELL MYELOMA
     Dosage: 20 MICROGRAM
     Route: 048
     Dates: start: 20120410, end: 20120925
  3. KARDEGIC [Concomitant]
     Indication: THROMBOSIS PROPHYLAXIS
     Dosage: 75 MILLIGRAM
     Route: 048
     Dates: start: 20100504
  4. FOSAVANCE [Concomitant]
     Indication: OSTEOPOROSIS
     Route: 048
     Dates: start: 200401
  5. ADALATE [Concomitant]
     Indication: RAYNAUD^S PHENOMENON
     Dosage: 10 MILLIGRAM
     Route: 048
     Dates: start: 2008
  6. OGAST [Concomitant]
     Indication: HIATUS HERNIA
     Dosage: 40 MILLIGRAM
     Route: 048
     Dates: start: 20100829
  7. TRANSIPEG [Concomitant]
     Indication: CONSTIPATION
     Dosage: SACHET
     Route: 048
     Dates: start: 20101214

REACTIONS (1)
  - Lung adenocarcinoma metastatic [Fatal]
